FAERS Safety Report 8455925-7 (Version None)
Quarter: 2012Q2

REPORT INFORMATION
  Report Type: 
  Country: None (occurrence: None)
  Receive Date: 20120621
  Receipt Date: 20120615
  Transmission Date: 20120825
  Serious: Yes (Hospitalization)
  Sender: FDA-Public Use
  Company Number: PHHY2012PL051622

PATIENT
  Age: 23 Year
  Sex: Female

DRUGS (3)
  1. CLARITHROMYCIN [Suspect]
  2. IBUPROFEN [Suspect]
  3. ACETAMINOPHEN [Suspect]

REACTIONS (11)
  - ACUTE HEPATIC FAILURE [None]
  - RESPIRATORY FAILURE [None]
  - ORAL DISORDER [None]
  - DERMATITIS EXFOLIATIVE [None]
  - PURPURA [None]
  - SKIN EXFOLIATION [None]
  - RASH MACULAR [None]
  - SKIN LESION [None]
  - ISCHAEMIA [None]
  - PETECHIAE [None]
  - STOMATITIS [None]
